FAERS Safety Report 18150734 (Version 2)
Quarter: 2020Q3

REPORT INFORMATION
  Report Type: Report from Study
  Country: US (occurrence: US)
  Receive Date: 20200814
  Receipt Date: 20200909
  Transmission Date: 20201103
  Serious: No
  Sender: FDA-Public Use
  Company Number: US-BIOVITRUM-2020US4192

PATIENT
  Age: 70 Year
  Sex: Female

DRUGS (25)
  1. KINERET [Suspect]
     Active Substance: ANAKINRA
     Indication: ARTERITIS
     Route: 058
     Dates: start: 20200723
  2. KINERET [Suspect]
     Active Substance: ANAKINRA
     Route: 058
     Dates: start: 20200803
  3. REGLAN [Concomitant]
     Active Substance: METOCLOPRAMIDE HYDROCHLORIDE
  4. SPIRINOLACTONE [Concomitant]
     Active Substance: SPIRONOLACTONE
  5. SYNTHROID [Concomitant]
     Active Substance: LEVOTHYROXINE SODIUM
  6. RESTASIS [Concomitant]
     Active Substance: CYCLOSPORINE
  7. MEDROL [Concomitant]
     Active Substance: METHYLPREDNISOLONE
  8. NORTRIPTYLINE [Concomitant]
     Active Substance: NORTRIPTYLINE
  9. LIPITOR [Concomitant]
     Active Substance: ATORVASTATIN CALCIUM
  10. VITAMIN D3 [Concomitant]
     Active Substance: CHOLECALCIFEROL
  11. CITRUCEL CALCIUM [Concomitant]
  12. ADVAIR HFA [Concomitant]
     Active Substance: FLUTICASONE PROPIONATE\SALMETEROL XINAFOATE
  13. DILTIAZEM. [Concomitant]
     Active Substance: DILTIAZEM
  14. AMLODIPINE [Concomitant]
     Active Substance: AMLODIPINE BESYLATE
  15. PLAVIX [Concomitant]
     Active Substance: CLOPIDOGREL BISULFATE
  16. INSULIN 70/30 [Concomitant]
     Active Substance: INSULIN HUMAN
  17. PRESERVISION [Concomitant]
     Active Substance: MINERALS\VITAMINS
  18. KINERET [Suspect]
     Active Substance: ANAKINRA
     Route: 058
     Dates: start: 20200121
  19. VENTOLIN [Concomitant]
     Active Substance: ALBUTEROL SULFATE
  20. ALBUTEROL. [Concomitant]
     Active Substance: ALBUTEROL
  21. SINGULAIR [Concomitant]
     Active Substance: MONTELUKAST SODIUM
  22. FAMOTIDINE. [Concomitant]
     Active Substance: FAMOTIDINE
  23. LASIX [Concomitant]
     Active Substance: FUROSEMIDE
  24. CYTOMEL [Concomitant]
     Active Substance: LIOTHYRONINE SODIUM
  25. PANTOPRAZOLE [Concomitant]
     Active Substance: PANTOPRAZOLE

REACTIONS (5)
  - Blood cholesterol increased [Unknown]
  - Injection site rash [Recovered/Resolved]
  - Injection site pain [Not Recovered/Not Resolved]
  - Off label use [Not Recovered/Not Resolved]
  - Cardiac disorder [Unknown]

NARRATIVE: CASE EVENT DATE: 20200121
